FAERS Safety Report 23780470 (Version 1)
Quarter: 2024Q2

REPORT INFORMATION
  Report Type: Report from Study
  Country: GB (occurrence: GB)
  Receive Date: 20240425
  Receipt Date: 20240425
  Transmission Date: 20240716
  Serious: Yes (Other)
  Sender: FDA-Public Use
  Company Number: GB-ABBVIE-5700739

PATIENT
  Age: 57 Year
  Sex: Female
  Weight: 62 kg

DRUGS (1)
  1. HUMIRA [Suspect]
     Active Substance: ADALIMUMAB
     Indication: Rheumatoid arthritis
     Dosage: FORM STRENGTH: 40 MG
     Route: 058

REACTIONS (5)
  - Aortic disorder [Unknown]
  - Neoplasm malignant [Unknown]
  - Oesophageal compression [Unknown]
  - Gastrooesophageal reflux disease [Unknown]
  - Oesophageal mass [Unknown]
